FAERS Safety Report 5616113-2 (Version None)
Quarter: 2008Q1

REPORT INFORMATION
  Report Type: 
  Country: None (occurrence: None)
  Receive Date: 20080206
  Receipt Date: 20080125
  Transmission Date: 20080703
  Serious: Yes (Other)
  Sender: FDA-Public Use
  Company Number: CA-PFIZER INC-2008009276

PATIENT
  Age: 73 Year
  Sex: Male

DRUGS (3)
  1. NEURONTIN [Suspect]
     Indication: PAIN
     Route: 048
  2. TERAZOSIN HCL [Concomitant]
     Route: 048
  3. SYNTHROID [Concomitant]
     Route: 048

REACTIONS (2)
  - IRRITABILITY [None]
  - MEMORY IMPAIRMENT [None]
